FAERS Safety Report 25304531 (Version 1)
Quarter: 2025Q2

REPORT INFORMATION
  Report Type: Spontaneous
  Country: US (occurrence: US)
  Receive Date: 20250513
  Receipt Date: 20250513
  Transmission Date: 20250717
  Serious: No
  Sender: INCYTE
  Company Number: US-EVENT-002466

PATIENT
  Age: 70 Year

DRUGS (2)
  1. MONJUVI [Suspect]
     Active Substance: TAFASITAMAB-CXIX
     Indication: Follicular lymphoma
     Route: 065
  2. LENALIDOMIDE;RITUXIMAB [Concomitant]
     Indication: Follicular lymphoma
     Route: 065

REACTIONS (1)
  - Off label use [Unknown]
